FAERS Safety Report 6902526-5 (Version None)
Quarter: 2010Q3

REPORT INFORMATION
  Report Type: 
  Country: None (occurrence: None)
  Receive Date: 20100730
  Receipt Date: 20100715
  Transmission Date: 20110219
  Serious: Yes (Hospitalization)
  Sender: FDA-Public Use
  Company Number: 1000015294

PATIENT
  Age: 84 Year
  Sex: Male

DRUGS (12)
  1. ESCITALOPRAM [Suspect]
     Dosage: ORAL
     Route: 048
     Dates: end: 20100607
  2. IXPRIM (TABLETS) [Suspect]
     Indication: PAIN
     Dosage: 2 DOSAGE FORMS (2 DOSAGE FORMS, 1 IN 1 D), ORAL
     Route: 048
     Dates: start: 20100604, end: 20100607
  3. ZOPICLONE (TABLETS) [Suspect]
     Indication: INSOMNIA
     Dosage: 1 DOSAGE FORMS (1 DOSAGE FORMS, 1 IN 1 D), ORAL
     Route: 048
     Dates: end: 20100607
  4. XANAX [Suspect]
     Indication: ANXIETY
     Dosage: 0.75 MG (0.25 MG, 3 IN 1 D), ORAL
     Route: 048
     Dates: end: 20100607
  5. VIRLIX (TABLETS) [Suspect]
     Dosage: 10 MG (10 MG, 1 IN 1 D), ORAL
     Route: 048
     Dates: end: 20100607
  6. DAFALGAN (TABLETS) [Suspect]
     Indication: PAIN
     Dosage: ORAL
     Route: 048
     Dates: end: 20100607
  7. LOPERAMIDE [Suspect]
     Dosage: ORAL
     Route: 048
     Dates: end: 20100607
  8. XATRAL [Suspect]
     Dosage: ORAL
     Route: 048
     Dates: end: 20100607
  9. COAPROVEL [Suspect]
     Dosage: (300 MG), ORAL
     Route: 048
     Dates: end: 20100607
  10. GLUCOR [Concomitant]
  11. PREVISCAN [Concomitant]
  12. ACETAMINOPHEN [Concomitant]

REACTIONS (15)
  - AGITATION [None]
  - BRONCHIAL OBSTRUCTION [None]
  - CONFUSIONAL STATE [None]
  - FALL [None]
  - HYPERTHERMIA [None]
  - HYPOTENSION [None]
  - INFLAMMATION [None]
  - INTERNATIONAL NORMALISED RATIO DECREASED [None]
  - MYDRIASIS [None]
  - OVERDOSE [None]
  - PARALYSIS FLACCID [None]
  - PRODUCTIVE COUGH [None]
  - RENAL FAILURE ACUTE [None]
  - SOMNOLENCE [None]
  - WITHDRAWAL SYNDROME [None]
